FAERS Safety Report 8423272-5 (Version None)
Quarter: 2012Q2

REPORT INFORMATION
  Report Type: 
  Country: None (occurrence: None)
  Receive Date: 20120323
  Receipt Date: 20110421
  Transmission Date: 20120825
  Serious: Yes (Other)
  Sender: FDA-Public Use
  Company Number: 163-21880-11022313

PATIENT
  Age: 64 Year
  Sex: Male

DRUGS (8)
  1. OSTEO BI-FLEX PLUS (OSTEO BI-FLEX) [Concomitant]
  2. LENALIDOMIDE [Suspect]
     Indication: MYELOFIBROSIS
     Dosage: 25 MG, 1 IN 1 D, PO
     Route: 048
     Dates: start: 20110201, end: 20110201
  3. NALTREXON HCL (NALTREXONE HYDROCHLORIDE) [Concomitant]
  4. NABUMETONE [Concomitant]
  5. METFORMIN HCL [Concomitant]
  6. TRIAMCINOLONE [Concomitant]
  7. IRON (IRON) [Concomitant]
  8. HYDROCORTONE [Concomitant]

REACTIONS (1)
  - BONE MARROW FAILURE [None]
